FAERS Safety Report 23798063 (Version 1)
Quarter: 2024Q2

REPORT INFORMATION
  Report Type: Spontaneous
  Country: US (occurrence: US)
  Receive Date: 20240430
  Receipt Date: 20240430
  Transmission Date: 20240716
  Serious: Yes (Other)
  Sender: FDA-Public Use
  Company Number: US-STRIDES ARCOLAB LIMITED-2024SP004967

PATIENT
  Age: 24 Year
  Sex: Female

DRUGS (1)
  1. VERAPAMIL [Suspect]
     Active Substance: VERAPAMIL HYDROCHLORIDE
     Indication: Hypertrophic cardiomyopathy
     Dosage: UNK
     Route: 065

REACTIONS (3)
  - Ventricular dyssynchrony [Recovered/Resolved]
  - Cardiac complication associated with device [Recovered/Resolved]
  - Off label use [Unknown]
